FAERS Safety Report 22040427 (Version 1)
Quarter: 2023Q1

REPORT INFORMATION
  Report Type: Spontaneous
  Country: CN (occurrence: CN)
  Receive Date: 20230227
  Receipt Date: 20230227
  Transmission Date: 20230418
  Serious: Yes (Life-Threatening, Other)
  Sender: FDA-Public Use
  Company Number: CN-BAYER-2023A024343

PATIENT
  Age: 82 Year
  Sex: Male
  Weight: 56 kg

DRUGS (3)
  1. ULTRAVIST [Suspect]
     Active Substance: IOPROMIDE
     Indication: Arteriogram
     Dosage: 100 ML, ONCE
     Route: 013
     Dates: start: 20230216, end: 20230216
  2. ULTRAVIST [Suspect]
     Active Substance: IOPROMIDE
     Indication: Pulmonary embolism
  3. ULTRAVIST [Suspect]
     Active Substance: IOPROMIDE
     Indication: Dyspnoea

REACTIONS (4)
  - Contrast media allergy [Recovering/Resolving]
  - Heart rate increased [Recovering/Resolving]
  - Blood pressure increased [Recovering/Resolving]
  - Dyspnoea [Recovering/Resolving]

NARRATIVE: CASE EVENT DATE: 20230216
